FAERS Safety Report 13701018 (Version 3)
Quarter: 2017Q4

REPORT INFORMATION
  Report Type: Spontaneous
  Country: US (occurrence: US)
  Receive Date: 20170629
  Receipt Date: 20171115
  Transmission Date: 20180320
  Serious: No
  Sender: FDA-Public Use
  Company Number: US-PFIZER INC-2017281161

PATIENT
  Age: 76 Year
  Sex: Female
  Weight: 102.95 kg

DRUGS (1)
  1. IBRANCE [Suspect]
     Active Substance: PALBOCICLIB
     Indication: BREAST CANCER METASTATIC
     Dosage: 125 MG, CYCLIC (D1-D21 Q28 D)/DAY 1-21 Q 28 DAYS
     Route: 048
     Dates: start: 20170613

REACTIONS (4)
  - Asthenopia [Unknown]
  - Fatigue [Unknown]
  - Palpitations [Unknown]
  - Neoplasm progression [Unknown]
